FAERS Safety Report 12777354 (Version 3)
Quarter: 2016Q4

REPORT INFORMATION
  Report Type: Spontaneous
  Country: US (occurrence: US)
  Receive Date: 20160924
  Receipt Date: 20161110
  Transmission Date: 20170207
  Serious: No
  Sender: FDA-Public Use
  Company Number: US-AMGEN-USASL2016124157

PATIENT
  Age: 55 Year
  Sex: Female

DRUGS (1)
  1. ENBREL [Suspect]
     Active Substance: ETANERCEPT
     Indication: ARTHROPATHY
     Dosage: 50 MG, QWK
     Route: 058

REACTIONS (5)
  - Nausea [Not Recovered/Not Resolved]
  - Formication [Not Recovered/Not Resolved]
  - Paraesthesia [Not Recovered/Not Resolved]
  - Off label use [Not Recovered/Not Resolved]
  - Sleep disorder [Unknown]

NARRATIVE: CASE EVENT DATE: 201608
